FAERS Safety Report 12370667 (Version 1)
Quarter: 2016Q2

REPORT INFORMATION
  Report Type: Other
  Country: GB (occurrence: GB)
  Receive Date: 20160516
  Receipt Date: 20160516
  Transmission Date: 20160815
  Serious: Yes (Other)
  Sender: FDA-Public Use
  Company Number: GB-MYLANLABS-2016M1019365

PATIENT

DRUGS (2)
  1. TOLTERODINE [Suspect]
     Active Substance: TOLTERODINE
     Indication: BLADDER DISORDER
     Dosage: 2 MG, QD
  2. PREBLACON XL [Suspect]
     Active Substance: TOLTERODINE TARTRATE
     Indication: BLADDER DISORDER
     Dosage: 2 MG, UNK

REACTIONS (8)
  - Slow speech [Recovered/Resolved]
  - Amnesia [Recovered/Resolved]
  - Gait disturbance [Recovered/Resolved]
  - Fatigue [Recovered/Resolved]
  - Depression [Recovered/Resolved]
  - Depressed mood [Recovered/Resolved]
  - Dementia [Recovered/Resolved]
  - Memory impairment [Recovered/Resolved]
